FAERS Safety Report 4379865-8 (Version None)
Quarter: 2004Q2

REPORT INFORMATION
  Report Type: 
  Country: None (occurrence: None)
  Receive Date: 20040614
  Receipt Date: 20040603
  Transmission Date: 20050107
  Serious: Yes (Death, Other)
  Sender: FDA-Public Use
  Company Number: 200410503BVD

PATIENT
  Age: 72 Year
  Sex: Female

DRUGS (2)
  1. CIPROFLOXACIN [Suspect]
     Indication: INFECTION
     Dates: start: 20040208, end: 20040217
  2. CIPROFLOXACIN [Suspect]
     Indication: PYREXIA
     Dates: start: 20040208, end: 20040217

REACTIONS (16)
  - AGRANULOCYTOSIS [None]
  - BODY TEMPERATURE INCREASED [None]
  - BONE MARROW DEPRESSION [None]
  - CANDIDA SEROLOGY POSITIVE [None]
  - CLOSTRIDIUM COLITIS [None]
  - ENTEROCOCCAL INFECTION [None]
  - GASTROENTERITIS NORWALK VIRUS [None]
  - GASTROENTERITIS VIRAL [None]
  - HEPATITIS [None]
  - LYMPHOCYTE PERCENTAGE INCREASED [None]
  - MULTI-ORGAN FAILURE [None]
  - PYREXIA [None]
  - RENAL FAILURE [None]
  - RESPIRATORY FAILURE [None]
  - STAPHYLOCOCCAL INFECTION [None]
  - WOUND INFECTION [None]
